FAERS Safety Report 5747351-6 (Version None)
Quarter: 2008Q2

REPORT INFORMATION
  Report Type: 
  Country: None (occurrence: None)
  Receive Date: 20080523
  Receipt Date: 20080514
  Transmission Date: 20081010
  Serious: Yes (Hospitalization, Other)
  Sender: FDA-Public Use
  Company Number: US-JNJFOC-20080307042

PATIENT
  Sex: Male
  Weight: 93.9 kg

DRUGS (5)
  1. REMICADE [Suspect]
     Route: 042
  2. REMICADE [Suspect]
     Indication: COLITIS ULCERATIVE
     Route: 042
  3. MESALAMINE [Concomitant]
  4. SULFASALAZINE [Concomitant]
  5. OMEPRAZOLE [Concomitant]

REACTIONS (1)
  - ENCEPHALITIS HERPES [None]
